FAERS Safety Report 7959435-2 (Version None)
Quarter: 2011Q4

REPORT INFORMATION
  Report Type: 
  Country: None (occurrence: None)
  Receive Date: 20111206
  Receipt Date: 20111202
  Transmission Date: 20120403
  Serious: No
  Sender: FDA-Public Use
  Company Number: US-PFIZER INC-2011295006

PATIENT
  Sex: Male

DRUGS (10)
  1. NIFEDIPINE [Concomitant]
     Indication: HYPERTENSION
     Dosage: UNK
  2. POTASSIUM CHLORIDE [Concomitant]
     Dosage: 20 MG, UNK
  3. PANTOPRAZOLE [Concomitant]
     Dosage: 40 MG, UNK
  4. FLONASE [Concomitant]
     Dosage: UNK
  5. ZOLPIDEM [Concomitant]
     Dosage: 10 MG, UNK
  6. TOPROL-XL [Concomitant]
     Indication: HYPERTENSION
     Dosage: UNK
  7. PREDNISONE [Concomitant]
     Dosage: 10 MG, UNK
  8. AMLODIPINE [Concomitant]
     Dosage: 10 MG, UNK
  9. VIAGRA [Suspect]
     Indication: ERECTILE DYSFUNCTION
     Dosage: 100 MG, AS NEEDED
     Route: 048
     Dates: start: 20060302, end: 20111001
  10. GLEEVEC [Interacting]
     Indication: NEOPLASM MALIGNANT
     Dosage: 400 MG, 1X/DAY
     Route: 048
     Dates: start: 20090331

REACTIONS (4)
  - DRUG INTERACTION [None]
  - MALAISE [None]
  - FATIGUE [None]
  - ASTHENIA [None]
